FAERS Safety Report 6215614-6 (Version None)
Quarter: 2009Q2

REPORT INFORMATION
  Report Type: 
  Country: None (occurrence: None)
  Receive Date: 20090603
  Receipt Date: 20090603
  Transmission Date: 20091009
  Serious: Yes (Death)
  Sender: FDA-Public Use
  Company Number: None

PATIENT
  Sex: Female
  Weight: 130.8174 kg

DRUGS (2)
  1. TAXOL [Suspect]
     Indication: BREAST CANCER METASTATIC
     Dosage: 404 MG TAXOL ONCE IV DRIP (O41)
     Route: 041
     Dates: start: 20090507
  2. GEMZAR 1000 MG POWDER X 3 VIALS LILLY [Suspect]
     Indication: BREAST CANCER METASTATIC
     Dosage: 28,882 MG GEMZAR ONCE IV DRIP (041)
     Route: 041
     Dates: start: 20090507

REACTIONS (1)
  - BREAST CANCER METASTATIC [None]
